FAERS Safety Report 9115152 (Version 2)
Quarter: 2013Q1

REPORT INFORMATION
  Report Type: Spontaneous
  Country: US (occurrence: US)
  Receive Date: 20130225
  Receipt Date: 20130322
  Transmission Date: 20140127
  Serious: Yes (Death, Hospitalization, Other)
  Sender: FDA-Public Use
  Company Number: US-ELI_LILLY_AND_COMPANY-US201302005327

PATIENT
  Sex: Male
  Weight: 98.87 kg

DRUGS (1)
  1. FORTEO [Suspect]
     Dosage: UNK UG, UNK

REACTIONS (3)
  - Myocardial infarction [Fatal]
  - Coronary artery disease [Fatal]
  - Post procedural infection [Unknown]
